FAERS Safety Report 6689015-0 (Version None)
Quarter: 2010Q2

REPORT INFORMATION
  Report Type: 
  Country: None (occurrence: None)
  Receive Date: 20100420
  Receipt Date: 20100412
  Transmission Date: 20101027
  Serious: Yes (Hospitalization, Other)
  Sender: FDA-Public Use
  Company Number: PHHY2010DE23428

PATIENT
  Age: 6 Year
  Sex: Female

DRUGS (5)
  1. CYCLOSPORINE [Suspect]
     Indication: STEM CELL TRANSPLANT
  2. CYCLOSPORINE [Suspect]
     Indication: PROPHYLAXIS AGAINST GRAFT VERSUS HOST DISEASE
  3. BUSULFEX [Concomitant]
     Indication: STEM CELL TRANSPLANT
     Dosage: 16 X 1.1 MG/KG
  4. CYCLOPHOSPHAMIDE [Concomitant]
     Indication: STEM CELL TRANSPLANT
     Dosage: 2 X 60 MG/KG
  5. MELPHALAN HYDROCHLORIDE [Concomitant]
     Indication: STEM CELL TRANSPLANT
     Dosage: 1 X 140 MG/M^2

REACTIONS (8)
  - ACUTE GRAFT VERSUS HOST DISEASE [None]
  - BK VIRUS INFECTION [None]
  - CLOSTRIDIAL INFECTION [None]
  - CYTOMEGALOVIRUS INFECTION [None]
  - GASTROENTERITIS CLOSTRIDIAL [None]
  - GASTROINTESTINAL HAEMORRHAGE [None]
  - PANCREAS LIPOMATOSIS [None]
  - VIRAL HAEMORRHAGIC CYSTITIS [None]
